FAERS Safety Report 10312582 (Version 1)
Quarter: 2014Q3

REPORT INFORMATION
  Report Type: Report from Study
  Country: US (occurrence: US)
  Receive Date: 20140718
  Receipt Date: 20140718
  Transmission Date: 20150326
  Serious: Yes (Life-Threatening, Hospitalization)
  Sender: FDA-Public Use
  Company Number: US-ROCHE-1384330

PATIENT
  Sex: Female
  Weight: 79 kg

DRUGS (15)
  1. INFLUENZA VACCINE [Concomitant]
     Active Substance: INFLUENZA VIRUS VACCINE
  2. CLARITIN [Concomitant]
     Active Substance: LORATADINE
  3. PREDNISONE. [Concomitant]
     Active Substance: PREDNISONE
     Route: 048
  4. SOLU-MEDROL [Concomitant]
     Active Substance: METHYLPREDNISOLONE SODIUM SUCCINATE
  5. H1N1 VACCINE [Concomitant]
  6. EPIPEN [Concomitant]
     Active Substance: EPINEPHRINE
     Route: 030
  7. BENADRYL [Concomitant]
     Active Substance: DIPHENHYDRAMINE HYDROCHLORIDE
  8. XOLAIR [Suspect]
     Active Substance: OMALIZUMAB
     Indication: ANAPHYLACTIC REACTION
     Route: 058
     Dates: start: 20070102
  9. ALBUTEROL. [Concomitant]
     Active Substance: ALBUTEROL
  10. XOLAIR [Suspect]
     Active Substance: OMALIZUMAB
     Indication: ACUTE RESPIRATORY FAILURE
  11. ZYRTEC [Concomitant]
     Active Substance: CETIRIZINE HYDROCHLORIDE
     Route: 048
  12. RANITIDINE [Concomitant]
     Active Substance: RANITIDINE\RANITIDINE HYDROCHLORIDE
     Route: 065
  13. ZANTAC [Concomitant]
     Active Substance: RANITIDINE HYDROCHLORIDE
  14. ATARAX [Concomitant]
     Active Substance: HYDROXYZINE\HYDROXYZINE HYDROCHLORIDE
     Route: 048
  15. PEPCID [Concomitant]
     Active Substance: FAMOTIDINE

REACTIONS (8)
  - Flushing [Unknown]
  - Anaphylactic reaction [Unknown]
  - Throat tightness [Unknown]
  - Urticaria [Unknown]
  - Angioedema [Unknown]
  - Laryngeal oedema [Unknown]
  - Respiratory distress [Unknown]
  - Abdominal pain [Unknown]
